FAERS Safety Report 10090011 (Version 1)
Quarter: 2014Q2

REPORT INFORMATION
  Report Type: Spontaneous
  Country: US (occurrence: US)
  Receive Date: 20140421
  Receipt Date: 20140421
  Transmission Date: 20141212
  Serious: Yes (Other)
  Sender: FDA-Public Use
  Company Number: US-ACTAVIS-2014-07533

PATIENT
  Sex: Male

DRUGS (3)
  1. NORCO (UNKNOWN) (WATSON LABORATORIES) [Suspect]
     Indication: PRODUCT USED FOR UNKNOWN INDICATION
     Dosage: 6-8 PER DAY
     Route: 065
  2. NORCO (UNKNOWN) (WATSON LABORATORIES) [Suspect]
     Dosage: 3-4 PER DAY
     Route: 065
  3. BUTRANS                            /00444001/ [Suspect]
     Indication: PRODUCT USED FOR UNKNOWN INDICATION
     Dosage: 10 MCG/HR, UNKNOWN
     Route: 065

REACTIONS (3)
  - Syncope [Unknown]
  - Fall [Unknown]
  - Concussion [Unknown]
